FAERS Safety Report 15663332 (Version 10)
Quarter: 2020Q2

REPORT INFORMATION
  Report Type: Report from Study
  Country: FR (occurrence: FR)
  Receive Date: 20181128
  Receipt Date: 20200528
  Transmission Date: 20200713
  Serious: Yes (Hospitalization)
  Sender: FDA-Public Use
  Company Number: FR-ROCHE-2216581

PATIENT
  Age: 54 Year
  Sex: Male
  Weight: 76.5 kg

DRUGS (3)
  1. ATEZOLIZUMAB. [Suspect]
     Active Substance: ATEZOLIZUMAB
     Indication: METASTATIC RENAL CELL CARCINOMA
     Dosage: DATE OF MOST RECENT DOSE PRIOR TO SAE ON 12/NOV/2018
     Route: 042
     Dates: start: 20181022
  2. PARACETAMOL [Concomitant]
     Active Substance: ACETAMINOPHEN
     Route: 065
     Dates: start: 20181022
  3. RO6874281 (FAP IL2V MAB) [Suspect]
     Active Substance: SIMLUKAFUSP ALFA
     Indication: METASTATIC RENAL CELL CARCINOMA
     Dosage: DATE OF MOST RECENT DOSE PRIOR TO SAE ON 12/NOV/2018
     Route: 042
     Dates: start: 20181022

REACTIONS (1)
  - Drug-induced liver injury [Recovered/Resolved]

NARRATIVE: CASE EVENT DATE: 20181113
